FAERS Safety Report 9138358 (Version 2)
Quarter: 2013Q2

REPORT INFORMATION
  Report Type: Spontaneous
  Country: US (occurrence: None)
  Receive Date: 20130228
  Receipt Date: 20130520
  Transmission Date: 20140414
  Serious: Yes (Death)
  Sender: FDA-Public Use
  Company Number: ACO_34316_2013

PATIENT
  Age: 65 Year
  Sex: Female

DRUGS (6)
  1. AMPYRA (DALFAMPRIDINE) TABLET, 10MG [Suspect]
     Indication: GAIT DISTURBANCE
     Route: 048
     Dates: start: 201007, end: 20130212
  2. CARBAMAZEPINE (CARBAMAZEPINE) CHEWABLE TABLET [Concomitant]
  3. LASIX (FUROSEMIDE) [Concomitant]
  4. COUMADIN (WARFARIN SODIUM) [Concomitant]
  5. CLONIDINE (CLONIDINE HYDROCHLORIDE) [Concomitant]
  6. LISINOPRIL (LISINOPRIL) [Concomitant]

REACTIONS (2)
  - Cardiac arrest [None]
  - Bradycardia [None]
